FAERS Safety Report 5962518-X (Version None)
Quarter: 2008Q4

REPORT INFORMATION
  Report Type: 
  Country: None (occurrence: None)
  Receive Date: 20081121
  Receipt Date: 20081111
  Transmission Date: 20090506
  Serious: Yes (Hospitalization)
  Sender: FDA-Public Use
  Company Number: DE-PFIZER INC-2008095421

PATIENT
  Sex: Male
  Weight: 91 kg

DRUGS (3)
  1. SOBELIN [Suspect]
     Indication: TOOTH INFECTION
     Dates: start: 20070701, end: 20070701
  2. INSULIN GLULISINE [Suspect]
     Indication: TYPE 2 DIABETES MELLITUS
     Dosage: FREQ:AS NEEDED
     Route: 058
     Dates: start: 20050228
  3. LANTUS [Suspect]
     Indication: TYPE 2 DIABETES MELLITUS
     Route: 058
     Dates: start: 20050228

REACTIONS (1)
  - COLITIS ULCERATIVE [None]
